FAERS Safety Report 8889831 (Version 1)
Quarter: 2012Q4

REPORT INFORMATION
  Report Type: 
  Country: US (occurrence: US)
  Receive Date: 20121107
  Receipt Date: 20121107
  Transmission Date: 20130627
  Serious: Yes (Other)
  Sender: FDA-Public Use
  Company Number: US-ELI_LILLY_AND_COMPANY-US201207008253

PATIENT
  Sex: Male
  Weight: 83 kg

DRUGS (1)
  1. GEMZAR [Suspect]
     Dosage: UNK
     Dates: start: 20110726

REACTIONS (3)
  - Neoplasm malignant [Unknown]
  - Malignant neoplasm progression [Unknown]
  - Abdominal pain [Unknown]
